FAERS Safety Report 5082612-8 (Version None)
Quarter: 2006Q3

REPORT INFORMATION
  Report Type: 
  Country: None (occurrence: None)
  Receive Date: 20060814
  Receipt Date: 20060728
  Transmission Date: 20061208
  Serious: Yes (Hospitalization, Congenital Anomaly, Other)
  Sender: FDA-Public Use
  Company Number: DSA_61040_2006

PATIENT
  Sex: Male
  Weight: 2880 kg

DRUGS (2)
  1. DIASTAT [Suspect]
     Dosage: DF
  2. LORAZEPAM [Suspect]
     Dosage: DF

REACTIONS (6)
  - BONE DISORDER [None]
  - CONGENITAL ANOMALY [None]
  - DRUG EXPOSURE DURING PREGNANCY [None]
  - ENCEPHALOCELE [None]
  - SKIN ATROPHY [None]
  - SKULL MALFORMATION [None]
